FAERS Safety Report 10530235 (Version 1)
Quarter: 2014Q4

REPORT INFORMATION
  Report Type: Spontaneous
  Country: CN (occurrence: CN)
  Receive Date: 20141021
  Receipt Date: 20141021
  Transmission Date: 20150528
  Serious: Yes (Hospitalization, Other)
  Sender: FDA-Public Use
  Company Number: CN-PFIZER INC-2014284064

PATIENT
  Age: 20 Year
  Sex: Female
  Weight: 70 kg

DRUGS (11)
  1. SOLU-MEDROL [Suspect]
     Active Substance: METHYLPREDNISOLONE SODIUM SUCCINATE
     Indication: NEUROMYELITIS OPTICA
     Dosage: 1000 MG, 1X/DAY, FOR 3 DAYS
     Route: 041
  2. SOLU-MEDROL [Suspect]
     Active Substance: METHYLPREDNISOLONE SODIUM SUCCINATE
     Dosage: 500 MG, 1X/DAY
     Route: 041
     Dates: start: 20140506, end: 20140508
  3. SOLU-MEDROL [Suspect]
     Active Substance: METHYLPREDNISOLONE SODIUM SUCCINATE
     Dosage: 240 MG, 1X/DAY
     Route: 041
     Dates: start: 20140508, end: 20140511
  4. ADENOSINE DISODIUM TRIPHOSPHATE/MAGNESIUM CHLORIDE [Concomitant]
     Indication: ADJUVANT THERAPY
     Dosage: 40 MG, 1X/DAY
     Route: 041
     Dates: start: 20140506, end: 20140514
  5. INSULIN [Concomitant]
     Active Substance: INSULIN NOS
     Indication: PROPHYLAXIS
     Dosage: 6 IU, UNK
     Dates: start: 20140507
  6. FAMOTIDINE. [Concomitant]
     Active Substance: FAMOTIDINE
     Indication: PROPHYLAXIS
     Dosage: 20 MG, 1X/DAY
     Route: 048
     Dates: start: 20140506, end: 20140513
  7. SODIUM AESCINATE [Concomitant]
     Indication: PROMOTION OF PERIPHERAL CIRCULATION
     Dosage: 10 MG, 1X/DAY
     Route: 041
     Dates: start: 20140506, end: 20140514
  8. COENZYME A [Concomitant]
     Active Substance: COENZYME A
     Indication: ADJUVANT THERAPY
     Dosage: 100 IU, 1X/DAY
     Route: 041
     Dates: start: 20140506, end: 20140514
  9. POTASSIUM CHLORIDE. [Concomitant]
     Active Substance: POTASSIUM CHLORIDE
     Indication: SUPPLEMENTATION THERAPY
     Dosage: 1.5 MG, UNK
     Dates: start: 20140507
  10. SULPERAZON [Concomitant]
     Active Substance: CEFOPERAZONE SODIUM\SULBACTAM SODIUM
     Indication: NEUROMYELITIS OPTICA
     Dosage: 0.5 G, 1X/DAY
     Route: 041
     Dates: start: 20140506, end: 20140508
  11. SOLU-MEDROL [Suspect]
     Active Substance: METHYLPREDNISOLONE SODIUM SUCCINATE
     Dosage: 120 MG, 1X/DAY
     Route: 041
     Dates: start: 20140511, end: 20140514

REACTIONS (5)
  - White blood cell count increased [Unknown]
  - Nasal obstruction [Unknown]
  - Sneezing [Unknown]
  - Dry throat [Unknown]
  - Neutrophil count increased [Unknown]

NARRATIVE: CASE EVENT DATE: 20140512
